FAERS Safety Report 22064573 (Version 1)
Quarter: 2023Q1

REPORT INFORMATION
  Report Type: Spontaneous
  Country: US (occurrence: None)
  Receive Date: 20230305
  Receipt Date: 20230305
  Transmission Date: 20230418
  Serious: Yes (Hospitalization)
  Sender: FDA-Public Use
  Company Number: None

PATIENT
  Age: 15 Year
  Sex: Male
  Weight: 71.1 kg

DRUGS (1)
  1. FLUOXETINE [Suspect]
     Active Substance: FLUOXETINE HYDROCHLORIDE
     Indication: Depression
     Dates: start: 20220118, end: 20220925

REACTIONS (10)
  - Emotional disorder [None]
  - Disturbance in social behaviour [None]
  - Mental status changes [None]
  - Condition aggravated [None]
  - Depression [None]
  - Agitation [None]
  - Accidental overdose [None]
  - Energy increased [None]
  - Sleep disorder [None]
  - Abnormal behaviour [None]

NARRATIVE: CASE EVENT DATE: 20220925
